FAERS Safety Report 7042899-9 (Version None)
Quarter: 2010Q4

REPORT INFORMATION
  Report Type: 
  Country: None (occurrence: None)
  Receive Date: 20101013
  Receipt Date: 20091022
  Transmission Date: 20110411
  Serious: No
  Sender: FDA-Public Use
  Company Number: AU-ASTRAZENECA-2009SE21882

PATIENT
  Age: 77 Year
  Sex: Male
  Weight: 93 kg

DRUGS (2)
  1. SYMBICORT [Suspect]
     Route: 055
  2. PULMICORT RESPULES [Suspect]
     Route: 055

REACTIONS (1)
  - CONSTIPATION [None]
